FAERS Safety Report 20612274 (Version 1)
Quarter: 2022Q1

REPORT INFORMATION
  Report Type: Spontaneous
  Country: GB (occurrence: None)
  Receive Date: 20220318
  Receipt Date: 20220318
  Transmission Date: 20220424
  Serious: Yes (Other)
  Sender: FDA-Public Use
  Company Number: None

PATIENT
  Age: 78 Year
  Sex: Male
  Weight: 68 kg

DRUGS (18)
  1. FEXOFENADINE HYDROCHLORIDE 180 [Suspect]
     Active Substance: FEXOFENADINE HYDROCHLORIDE
     Indication: Poor peripheral circulation
     Dosage: OTHER QUANTITY : 1 CAPSULE(S);?FREQUENCY : AT BEDTIME;?
     Route: 048
     Dates: start: 20220315, end: 20220316
  2. FEXOFENADINE HYDROCHLORIDE 180 [Suspect]
     Active Substance: FEXOFENADINE HYDROCHLORIDE
     Indication: Discomfort
  3. ZERO BASE CREAM [Concomitant]
  4. GLICLAZINE [Concomitant]
  5. METFORMIN [Concomitant]
     Active Substance: METFORMIN HYDROCHLORIDE
  6. AMLODIPINE [Concomitant]
     Active Substance: AMLODIPINE BESYLATE
  7. IBUPROFEN [Concomitant]
     Active Substance: IBUPROFEN
  8. HYPROMELLOSES [Concomitant]
     Active Substance: HYPROMELLOSES
  9. LACTULOSE [Concomitant]
     Active Substance: LACTULOSE
  10. LANSOPRAZOLE [Concomitant]
     Active Substance: LANSOPRAZOLE
  11. LISINOPRIL [Concomitant]
     Active Substance: LISINOPRIL
  12. SENNA [Concomitant]
     Active Substance: SENNA LEAF\SENNOSIDES\SENNOSIDES A AND B
  13. SODIUM PICOSULFATE [Concomitant]
     Active Substance: SODIUM PICOSULFATE
  14. VITAMIN B COMPLEX [Concomitant]
     Active Substance: CYANOCOBALAMIN\DEXPANTHENOL\NIACINAMIDE\PYRIDOXINE HYDROCHLORIDE\RIBOFLAVIN 5^-PHOSPHATE SODIUM\THIA
  15. MULTIVITAMIN WITH VITAMIN E [Concomitant]
  16. CALCIUM\VITAMIN D [Concomitant]
     Active Substance: CALCIUM\VITAMIN D
  17. GLUCOSAMINE SULFATE [Concomitant]
     Active Substance: GLUCOSAMINE SULFATE
  18. 2KCL [Concomitant]

REACTIONS (4)
  - Headache [None]
  - Insomnia [None]
  - Dizziness [None]
  - Pruritus [None]

NARRATIVE: CASE EVENT DATE: 20220315
